FAERS Safety Report 8583767-0 (Version None)
Quarter: 2012Q3

REPORT INFORMATION
  Report Type: 
  Country: None (occurrence: None)
  Receive Date: 20120810
  Receipt Date: 20120726
  Transmission Date: 20120928
  Serious: Yes (Hospitalization, Disabling, Other)
  Sender: FDA-Public Use
  Company Number: US-009507513-1110USA02739

PATIENT

DRUGS (4)
  1. FOSAMAX [Suspect]
     Indication: OSTEOPOROSIS
     Dosage: 70 MG, QW
     Route: 048
     Dates: start: 20070101, end: 20091001
  2. FOSAMAX [Suspect]
     Indication: OSTEOPENIA
  3. ACTONEL [Suspect]
     Indication: OSTEOPOROSIS
     Dates: start: 20050101, end: 20070301
  4. ACTONEL [Suspect]
     Indication: OSTEOPENIA

REACTIONS (53)
  - VITAMIN D DEFICIENCY [None]
  - INSOMNIA [None]
  - ARTHRALGIA [None]
  - OSTEOARTHRITIS [None]
  - GLOSSITIS [None]
  - BLOOD POTASSIUM DECREASED [None]
  - HYPONATRAEMIA [None]
  - BLOOD CALCIUM DECREASED [None]
  - HYPERLIPIDAEMIA [None]
  - PULMONARY HYPERTENSION [None]
  - GLUCOSE TOLERANCE IMPAIRED [None]
  - CYSTITIS [None]
  - VOMITING [None]
  - LACTIC ACIDOSIS [None]
  - BLOOD PHOSPHORUS DECREASED [None]
  - HYPERSENSITIVITY [None]
  - TOOTH DISORDER [None]
  - LOW TURNOVER OSTEOPATHY [None]
  - COUGH [None]
  - SLEEP APNOEA SYNDROME [None]
  - ABDOMINAL PAIN [None]
  - ANAEMIA [None]
  - FALL [None]
  - DEHYDRATION [None]
  - COLITIS ISCHAEMIC [None]
  - PERITONITIS [None]
  - CONSTIPATION [None]
  - SEASONAL ALLERGY [None]
  - GASTROOESOPHAGEAL REFLUX DISEASE [None]
  - DEPRESSION [None]
  - HYPOAESTHESIA [None]
  - RENAL FAILURE [None]
  - ANXIETY [None]
  - EXOSTOSIS [None]
  - JOINT EFFUSION [None]
  - ARTHRITIS [None]
  - GASTRITIS ATROPHIC [None]
  - HYPOKALAEMIA [None]
  - POLLAKIURIA [None]
  - ABDOMINAL SEPSIS [None]
  - BLOOD CHLORIDE DECREASED [None]
  - EAR PAIN [None]
  - HYPOTENSION [None]
  - DIABETES MELLITUS [None]
  - INFECTION [None]
  - FEMUR FRACTURE [None]
  - DYSPNOEA [None]
  - GAIT DISTURBANCE [None]
  - URINARY TRACT INFECTION [None]
  - HEPATIC CYST [None]
  - ELECTROLYTE IMBALANCE [None]
  - GASTRIC DISORDER [None]
  - BODY HEIGHT DECREASED [None]
